FAERS Safety Report 9300841 (Version 2)
Quarter: 2013Q3

REPORT INFORMATION
  Report Type: Spontaneous
  Country: GB (occurrence: GB)
  Receive Date: 20130521
  Receipt Date: 20130802
  Transmission Date: 20140515
  Serious: Yes (Death)
  Sender: FDA-Public Use
  Company Number: PHHY2013GB050203

PATIENT
  Age: 49 Year
  Sex: Male
  Weight: 72 kg

DRUGS (2)
  1. CITALOPRAM [Suspect]
     Indication: DEPRESSION
     Dosage: 40 MG DAILY
     Route: 048
  2. PARACETAMOL [Concomitant]

REACTIONS (1)
  - Toxicity to various agents [Fatal]
